FAERS Safety Report 5079710-1 (Version None)
Quarter: 2006Q3

REPORT INFORMATION
  Report Type: 
  Country: None (occurrence: None)
  Receive Date: 20060808
  Receipt Date: 20060721
  Transmission Date: 20061208
  Serious: Yes (Hospitalization)
  Sender: FDA-Public Use
  Company Number: US200607002375

PATIENT
  Age: 63 Year
  Sex: Female

DRUGS (8)
  1. CYMBALTA [Suspect]
     Indication: DEPRESSION
     Dosage: 30 MG
     Dates: start: 20060503, end: 20060710
  2. DAYPRO /USA/ (OXAPROZIN) [Concomitant]
  3. KLONOPIN [Concomitant]
  4. PEPCID [Concomitant]
  5. ZESTRIL /USA/ (LISINOPRIL) [Concomitant]
  6. PREMARIN [Concomitant]
  7. VITAMINS [Concomitant]
  8. ASPIRIN [Concomitant]

REACTIONS (6)
  - CHEST DISCOMFORT [None]
  - DYSPNOEA [None]
  - FATIGUE [None]
  - INSOMNIA [None]
  - PRURITUS [None]
  - RESTLESSNESS [None]
